FAERS Safety Report 20819552 (Version 1)
Quarter: 2022Q2

REPORT INFORMATION
  Report Type: Spontaneous
  Country: US (occurrence: None)
  Receive Date: 20220511
  Receipt Date: 20220511
  Transmission Date: 20220721
  Serious: No
  Sender: FDA-Public Use
  Company Number: None

PATIENT
  Age: 32 Year
  Sex: Female
  Weight: 87.75 kg

DRUGS (1)
  1. TOPIRAMATE [Suspect]
     Active Substance: TOPIRAMATE
     Indication: Vestibular migraine
     Dosage: OTHER QUANTITY : 180 TABLET(S);?
     Dates: start: 20220510, end: 20220511

REACTIONS (4)
  - Headache [None]
  - Nausea [None]
  - Dizziness [None]
  - Product complaint [None]

NARRATIVE: CASE EVENT DATE: 20220510
